FAERS Safety Report 6573383-4 (Version None)
Quarter: 2010Q1

REPORT INFORMATION
  Report Type: 
  Country: None (occurrence: None)
  Receive Date: 20100204
  Receipt Date: 20100204
  Transmission Date: 20100710
  Serious: Yes (Other)
  Sender: FDA-Public Use
  Company Number: None

PATIENT
  Age: 12 Year
  Sex: Male
  Weight: 54.4316 kg

DRUGS (2)
  1. ATIVAN [Suspect]
     Indication: PSYCHOMOTOR HYPERACTIVITY
     Dosage: 1 MG 2ICE DAILY
     Dates: start: 20100120
  2. ATIVAN [Suspect]
     Indication: PSYCHOMOTOR HYPERACTIVITY
     Dosage: 1 MG 2ICE DAILY
     Dates: start: 20100121

REACTIONS (3)
  - AGGRESSION [None]
  - ANGER [None]
  - UNEVALUABLE EVENT [None]
